FAERS Safety Report 5242443-2 (Version None)
Quarter: 2007Q1

REPORT INFORMATION
  Report Type: 
  Country: None (occurrence: None)
  Receive Date: 20070221
  Receipt Date: 20070209
  Transmission Date: 20070707
  Serious: Yes (Hospitalization, Other)
  Sender: FDA-Public Use
  Company Number: US-BAYER-200615076BCC

PATIENT
  Sex: Female
  Weight: 84 kg

DRUGS (1)
  1. ALKA SELTZER [Suspect]
     Indication: DYSPEPSIA
     Dosage: TOTAL DAILY DOSE: 650 MG  UNIT DOSE: 325 MG
     Route: 048
     Dates: start: 20061218

REACTIONS (3)
  - HAEMORRHAGE [None]
  - INTRA-UTERINE DEATH [None]
  - URTICARIA [None]
